FAERS Safety Report 12159559 (Version 1)
Quarter: 2016Q1

REPORT INFORMATION
  Report Type: Spontaneous
  Country: US (occurrence: None)
  Receive Date: 20160307
  Receipt Date: 20160307
  Transmission Date: 20160526
  Serious: No
  Sender: FDA-Public Use
  Company Number: None

PATIENT
  Age: 45 Year
  Sex: Female

DRUGS (1)
  1. XELJANZ [Suspect]
     Active Substance: TOFACITINIB CITRATE
     Route: 048
     Dates: start: 20140301

REACTIONS (5)
  - Mobility decreased [None]
  - Condition aggravated [None]
  - Laboratory test abnormal [None]
  - Musculoskeletal pain [None]
  - Arthralgia [None]

NARRATIVE: CASE EVENT DATE: 20160101
